FAERS Safety Report 8133708-5 (Version None)
Quarter: 2012Q1

REPORT INFORMATION
  Report Type: 
  Country: None (occurrence: None)
  Receive Date: 20120213
  Receipt Date: 20120203
  Transmission Date: 20120608
  Serious: Yes (Hospitalization)
  Sender: FDA-Public Use
  Company Number: US-ABBOTT-12P-163-0900060-00

PATIENT

DRUGS (8)
  1. FENTANYL [Concomitant]
     Indication: PAIN
  2. TEMAZEPAM [Concomitant]
     Indication: PRODUCT USED FOR UNKNOWN INDICATION
  3. PREDNISONE TAB [Concomitant]
     Indication: PRODUCT USED FOR UNKNOWN INDICATION
  4. HUMIRA [Suspect]
     Indication: ANKYLOSING SPONDYLITIS
     Dates: start: 20100907, end: 20111001
  5. NORCO [Concomitant]
     Indication: PAIN
  6. FLEXERIL [Concomitant]
     Indication: PRODUCT USED FOR UNKNOWN INDICATION
  7. MULTIPLE VITAMINS [Concomitant]
     Indication: VITAMIN SUPPLEMENTATION
  8. REGLAN [Concomitant]
     Indication: PRODUCT USED FOR UNKNOWN INDICATION

REACTIONS (15)
  - STRESS [None]
  - SEPTIC SHOCK [None]
  - ACUTE RESPIRATORY DISTRESS SYNDROME [None]
  - LUNG INFILTRATION [None]
  - RESPIRATORY ALKALOSIS [None]
  - BODY TEMPERATURE INCREASED [None]
  - HEADACHE [None]
  - BLASTOMYCOSIS [None]
  - DYSPNOEA [None]
  - HYPOKALAEMIA [None]
  - HEPATIC ENZYME INCREASED [None]
  - VISUAL IMPAIRMENT [None]
  - HYPERACUSIS [None]
  - SEPSIS [None]
  - ACUTE MYOCARDIAL INFARCTION [None]
